FAERS Safety Report 8774042 (Version 1)
Quarter: 2012Q4

REPORT INFORMATION
  Report Type: 
  Country: GB (occurrence: GB)
  Receive Date: 20120907
  Receipt Date: 20120907
  Transmission Date: 20130627
  Serious: Yes (Disabling)
  Sender: FDA-Public Use
  Company Number: GB-BAYER-2012-091118

PATIENT
  Age: 26 Year
  Sex: Female
  Weight: 61 kg

DRUGS (1)
  1. YASMIN, FILM-COATED TABLETS, 0.03 MG/3 MG [Suspect]
     Dosage: UNK
     Dates: start: 20100701, end: 20110202

REACTIONS (2)
  - Raynaud^s phenomenon [Recovered/Resolved]
  - Raynaud^s phenomenon [None]
